FAERS Safety Report 8085624-5 (Version None)
Quarter: 2012Q1

REPORT INFORMATION
  Report Type: 
  Country: None (occurrence: None)
  Receive Date: 20120128
  Receipt Date: 20110401
  Transmission Date: 20120608
  Serious: No
  Sender: FDA-Public Use
  Company Number: US-ABBOTT-11P-163-0716038-00

PATIENT
  Age: 41 Year
  Sex: Female

DRUGS (7)
  1. GLIPIZIDE [Concomitant]
     Indication: DIABETES MELLITUS
  2. LIPITOR [Concomitant]
     Indication: BLOOD CHOLESTEROL INCREASED
  3. WOMEN'S ONE A DAY VITAMIN [Concomitant]
     Indication: VITAMIN SUPPLEMENTATION
     Dosage: DAILY
  4. HUMIRA [Suspect]
     Indication: PSORIASIS
     Dates: start: 20110301
  5. METFFORMIN HYDROCHLORIDE [Concomitant]
     Indication: DIABETES MELLITUS
  6. ACTOS [Concomitant]
     Indication: DIABETES MELLITUS
  7. METOPROLOL TARTRATE [Concomitant]
     Indication: HYPERTENSION

REACTIONS (4)
  - INJECTION SITE HAEMATOMA [None]
  - INJECTION SITE PAIN [None]
  - DEVICE MALFUNCTION [None]
  - INJECTION SITE HAEMORRHAGE [None]
